FAERS Safety Report 14606342 (Version 1)
Quarter: 2018Q1

REPORT INFORMATION
  Report Type: Report from Study
  Country: None (occurrence: DE)
  Receive Date: 20180307
  Receipt Date: 20180307
  Transmission Date: 20180509
  Serious: Yes (Hospitalization)
  Sender: FDA-Public Use
  Company Number: DE-ABBVIE-18K-062-2275960-00

PATIENT
  Sex: Female

DRUGS (2)
  1. HUMIRA [Suspect]
     Active Substance: ADALIMUMAB
     Indication: CROHN^S DISEASE
     Route: 058
     Dates: start: 201801
  2. HUMIRA [Suspect]
     Active Substance: ADALIMUMAB
     Indication: CROHN^S DISEASE
     Route: 058
     Dates: start: 20151229, end: 201710

REACTIONS (6)
  - Erysipelas [Unknown]
  - Cystitis [Recovered/Resolved]
  - Subcutaneous abscess [Recovering/Resolving]
  - Swelling [Recovering/Resolving]
  - Vulvovaginal mycotic infection [Recovered/Resolved]
  - Intestinal fistula [Recovered/Resolved]

NARRATIVE: CASE EVENT DATE: 2017
